FAERS Safety Report 5337686-3 (Version None)
Quarter: 2007Q2

REPORT INFORMATION
  Report Type: 
  Country: None (occurrence: None)
  Receive Date: 20070315
  Receipt Date: 20060405
  Transmission Date: 20071010
  Serious: Yes (Other)
  Sender: FDA-Public Use
  Company Number: PHEH2006US04514

PATIENT
  Age: 8 Year
  Sex: Female

DRUGS (1)
  1. TRILEPTAL [Suspect]
     Indication: CONVULSION
     Dosage: 22 MG / KG, QD
     Dates: start: 20050101

REACTIONS (2)
  - CONVULSION [None]
  - HYPONATRAEMIA [None]
